FAERS Safety Report 20632392 (Version 2)
Quarter: 2022Q2

REPORT INFORMATION
  Report Type: Spontaneous
  Country: US (occurrence: US)
  Receive Date: 20220324
  Receipt Date: 20220406
  Transmission Date: 20220720
  Serious: Yes (Death)
  Sender: FDA-Public Use
  Company Number: US-PFIZER INC-202200442851

PATIENT
  Age: 74 Year
  Sex: Female

DRUGS (1)
  1. LINEZOLID [Suspect]
     Active Substance: LINEZOLID
     Indication: Perinephric abscess
     Dosage: UNK

REACTIONS (2)
  - Thrombocytopenia [Fatal]
  - Subdural haematoma [Fatal]
